FAERS Safety Report 9767466 (Version 4)
Quarter: 2014Q1

REPORT INFORMATION
  Report Type: Spontaneous
  Country: CO (occurrence: CO)
  Receive Date: 20131217
  Receipt Date: 20140131
  Transmission Date: 20141002
  Serious: Yes (Other)
  Sender: FDA-Public Use
  Company Number: CO-VERTEX PHARMACEUTICALS INC-2013-011833

PATIENT
  Age: 59 Year
  Sex: Female
  Weight: 62 kg

DRUGS (4)
  1. INCIVO [Suspect]
     Indication: HEPATITIS C
     Dosage: 2250 MG, QD
     Route: 048
     Dates: start: 20131209
  2. INTERFERON ALFA 2B [Suspect]
     Indication: HEPATITIS C
     Dosage: 100 ?G, QW
     Route: 058
     Dates: start: 20131209
  3. RIBAVIRIN [Suspect]
     Indication: HEPATITIS C
     Dosage: 800 MG, QD
     Route: 048
     Dates: start: 20131209
  4. RIBAVIRIN [Suspect]
     Dosage: 600 MG, QD
     Route: 048

REACTIONS (8)
  - Pyrexia [Not Recovered/Not Resolved]
  - Headache [Unknown]
  - Chills [Not Recovered/Not Resolved]
  - Nausea [Not Recovered/Not Resolved]
  - Vomiting [Not Recovered/Not Resolved]
  - Rash [Not Recovered/Not Resolved]
  - Pruritus generalised [Unknown]
  - Anaemia [Not Recovered/Not Resolved]
